FAERS Safety Report 15810161 (Version 1)
Quarter: 2019Q1

REPORT INFORMATION
  Report Type: Spontaneous
  Country: US (occurrence: US)
  Receive Date: 20190111
  Receipt Date: 20190111
  Transmission Date: 20190417
  Serious: No
  Sender: FDA-Public Use
  Company Number: US-ROCHE-2148963

PATIENT
  Age: 46 Year
  Sex: Female
  Weight: 58.11 kg

DRUGS (7)
  1. RITUXAN [Suspect]
     Active Substance: RITUXIMAB
     Indication: RHEUMATOID ARTHRITIS
     Dosage: ONGOING:UNKNOWN
     Route: 042
  2. CHLORPHENIRAMINE. [Concomitant]
     Active Substance: CHLORPHENIRAMINE
     Indication: PREMEDICATION
     Dosage: 10MG DILUTED IN 100CC PHYSIOLOGICAL SOLUTION ;ONGOING: NO
     Route: 065
  3. RITUXAN [Suspect]
     Active Substance: RITUXIMAB
     Route: 042
     Dates: start: 20180613
  4. RITUXAN [Suspect]
     Active Substance: RITUXIMAB
     Route: 042
     Dates: start: 20180530
  5. BENADRYL [Suspect]
     Active Substance: DIPHENHYDRAMINE HYDROCHLORIDE
     Indication: PREMEDICATION
     Dosage: ONGOING:NO
     Route: 065
     Dates: start: 20180530
  6. CHLORPHENIRAMINE. [Concomitant]
     Active Substance: CHLORPHENIRAMINE
     Dosage: ONGOING:UNKNOWN
     Route: 065
     Dates: start: 20180613
  7. HYDROCORTISYL [Concomitant]
     Indication: PREMEDICATION
     Dosage: 100MG DILUTED IN PHYSIOLOGICAL SOLUTION OF 100CC ;ONGOING: NO
     Route: 065

REACTIONS (16)
  - Malaise [Recovered/Resolved]
  - Emotional distress [Recovered/Resolved]
  - Chest pain [Unknown]
  - Anxiety [Recovered/Resolved]
  - Chills [Recovered/Resolved]
  - Head discomfort [Recovered/Resolved]
  - Blood pressure increased [Recovered/Resolved]
  - Inflammation [Unknown]
  - Dyskinesia [Unknown]
  - Agitation [Recovered/Resolved]
  - Abdominal pain upper [Unknown]
  - Oropharyngeal pain [Unknown]
  - Arthralgia [Unknown]
  - Dyspnoea [Recovered/Resolved]
  - Sensation of foreign body [Unknown]
  - Eye movement disorder [Unknown]

NARRATIVE: CASE EVENT DATE: 20180530
